FAERS Safety Report 7980078-9 (Version None)
Quarter: 2011Q4

REPORT INFORMATION
  Report Type: 
  Country: None (occurrence: None)
  Receive Date: 20111212
  Receipt Date: 20111205
  Transmission Date: 20120403
  Serious: No
  Sender: FDA-Public Use
  Company Number: 2011-01324

PATIENT
  Age: 68 Year
  Sex: Female

DRUGS (5)
  1. MIRTAZAPINE [Concomitant]
  2. ZCIAM COLD REMEDY RAPIDMELTS [Suspect]
     Indication: NASOPHARYNGITIS
     Dosage: 1 RAPIDMENT EVERY 3 HOURS
     Dates: start: 20111204, end: 20111205
  3. ALENDRONATE SODIUM [Concomitant]
  4. ZICAM, UNKNOWN NASAL PRODUCT [Suspect]
     Dates: start: 20011201
  5. SIMVASTATIN [Concomitant]

REACTIONS (1)
  - AGEUSIA [None]
